FAERS Safety Report 16128991 (Version 1)
Quarter: 2019Q1

REPORT INFORMATION
  Report Type: Spontaneous
  Country: CN (occurrence: CN)
  Receive Date: 20190328
  Receipt Date: 20190328
  Transmission Date: 20190418
  Serious: Yes (Death, Hospitalization)
  Sender: FDA-Public Use
  Company Number: CN-PFIZER INC-2019128718

PATIENT
  Age: 73 Year
  Sex: Male
  Weight: 70 kg

DRUGS (2)
  1. MEROPENEM. [Suspect]
     Active Substance: MEROPENEM
     Indication: THERAPEUTIC PROCEDURE
     Dosage: 0.5 G, 3X/DAY
     Dates: start: 20181119, end: 20181129
  2. ZYVOX [Suspect]
     Active Substance: LINEZOLID
     Indication: THERAPEUTIC PROCEDURE
     Dosage: 300 G, 2X/DAY
     Route: 041
     Dates: start: 20181120, end: 20181130

REACTIONS (4)
  - Pneumonia [Fatal]
  - Septic shock [Fatal]
  - Platelet count decreased [Not Recovered/Not Resolved]
  - Multiple organ dysfunction syndrome [Fatal]

NARRATIVE: CASE EVENT DATE: 20181127
